FAERS Safety Report 16434343 (Version 1)
Quarter: 2019Q2

REPORT INFORMATION
  Report Type: Spontaneous
  Country: US (occurrence: US)
  Receive Date: 20190614
  Receipt Date: 20190614
  Transmission Date: 20190711
  Serious: No
  Sender: FDA-Public Use
  Company Number: US-GLAXOSMITHKLINE-US2019103372

PATIENT
  Age: 72 Year
  Sex: Female

DRUGS (1)
  1. VOLTAREN [Suspect]
     Active Substance: DICLOFENAC SODIUM
     Indication: ARTHRITIS
     Dosage: UNK
     Dates: start: 20190606

REACTIONS (4)
  - Joint stiffness [Unknown]
  - Application site pain [Unknown]
  - Inappropriate schedule of product administration [Unknown]
  - Application site erythema [Unknown]

NARRATIVE: CASE EVENT DATE: 20190606
